FAERS Safety Report 8317959-2 (Version None)
Quarter: 2012Q2

REPORT INFORMATION
  Report Type: 
  Country: None (occurrence: None)
  Receive Date: 20120427
  Receipt Date: 20120420
  Transmission Date: 20120825
  Serious: Yes (Death, Life-Threatening, Hospitalization)
  Sender: FDA-Public Use
  Company Number: US-CELGENEUS-163-20785-12042376

PATIENT
  Sex: Male

DRUGS (2)
  1. THALOMID [Suspect]
     Dosage: 200 MILLIGRAM
     Route: 048
     Dates: start: 20120201
  2. THALOMID [Suspect]
     Indication: MULTIPLE MYELOMA
     Dosage: 400 MILLIGRAM
     Route: 048
     Dates: start: 20111001

REACTIONS (2)
  - GRAFT VERSUS HOST DISEASE [None]
  - RENAL FAILURE ACUTE [None]
